FAERS Safety Report 5663008-4 (Version None)
Quarter: 2008Q1

REPORT INFORMATION
  Report Type: 
  Country: None (occurrence: None)
  Receive Date: 20080313
  Receipt Date: 20080312
  Transmission Date: 20080703
  Serious: Yes (Death)
  Sender: FDA-Public Use
  Company Number: SK-WYE-H03060608

PATIENT
  Age: 53 Year
  Sex: Female
  Weight: 59 kg

DRUGS (6)
  1. RAPAMUNE [Suspect]
     Indication: PROPHYLAXIS AGAINST TRANSPLANT REJECTION
     Dosage: INITIAL DOSE AND FREQUENCY WAS NOT SPECIFIED
     Route: 065
     Dates: start: 20070117, end: 20070101
  2. RAPAMUNE [Suspect]
     Route: 065
     Dates: start: 20070101, end: 20070101
  3. RAPAMUNE [Suspect]
     Route: 065
     Dates: start: 20070101
  4. RAPAMUNE [Suspect]
     Route: 065
     Dates: start: 20070101
  5. RAPAMUNE [Suspect]
     Dosage: DOSE AND FREQUENCY NOT SPECIFIED
     Route: 065
     Dates: start: 20070101, end: 20080104
  6. MYCOPHENOLATE MOFETIL [Concomitant]
     Indication: IMMUNOSUPPRESSION
     Dosage: DOSE AND FREQUENCY NOT SPECIFIED
     Route: 065

REACTIONS (1)
  - UTERINE CANCER [None]
